FAERS Safety Report 24222448 (Version 1)
Quarter: 2024Q3

REPORT INFORMATION
  Report Type: Spontaneous
  Country: GB (occurrence: GB)
  Receive Date: 20240819
  Receipt Date: 20240819
  Transmission Date: 20241017
  Serious: Yes (Hospitalization)
  Sender: CADILA
  Company Number: GB-CPL-004527

PATIENT
  Age: 26 Year
  Sex: Female

DRUGS (1)
  1. VENLAFAXINE [Suspect]
     Active Substance: VENLAFAXINE HYDROCHLORIDE
     Indication: Depression
     Dosage: 225 MG XL, REDUCED IT TO 75 MG, REDUCTION TO 37.5, DISCONTINUED VENLAFAXINE ENTIRELY
     Dates: end: 202308

REACTIONS (1)
  - Antidepressant discontinuation syndrome [Recovering/Resolving]

NARRATIVE: CASE EVENT DATE: 20230101
